FAERS Safety Report 5318229-7 (Version None)
Quarter: 2007Q2

REPORT INFORMATION
  Report Type: 
  Country: None (occurrence: None)
  Receive Date: 20070507
  Receipt Date: 20070425
  Transmission Date: 20071010
  Serious: Yes (Other)
  Sender: FDA-Public Use
  Company Number: US-PFIZER INC-2007033582

PATIENT
  Sex: Female
  Weight: 76 kg

DRUGS (2)
  1. DEPO-PROVERA [Suspect]
     Indication: CONTRACEPTION
     Route: 030
     Dates: start: 20061030, end: 20061030
  2. DEPO-SUBQ PROVERA 104 [Suspect]
     Indication: CONTRACEPTION
     Route: 058
     Dates: start: 20070119, end: 20070119

REACTIONS (3)
  - CHOLECYSTECTOMY [None]
  - DRUG INEFFECTIVE [None]
  - UNINTENDED PREGNANCY [None]
